FAERS Safety Report 17729111 (Version 3)
Quarter: 2020Q3

REPORT INFORMATION
  Report Type: Report from Study
  Country: US (occurrence: US)
  Receive Date: 20200430
  Receipt Date: 20200701
  Transmission Date: 20201102
  Serious: Yes (Hospitalization, Other)
  Sender: FDA-Public Use
  Company Number: US-TAKEDA-2020TUS020163

PATIENT
  Sex: Female
  Weight: 68.03 kg

DRUGS (1)
  1. BRIGATINIB [Suspect]
     Active Substance: BRIGATINIB
     Indication: NON-SMALL CELL LUNG CANCER
     Dosage: UNK
     Route: 065

REACTIONS (24)
  - Depression [Unknown]
  - Constipation [Unknown]
  - Metastases to lung [Recovered/Resolved]
  - Metastases to liver [Recovered/Resolved]
  - Emotional distress [Unknown]
  - Gastrointestinal disorder [Unknown]
  - Sleep disorder [Recovered/Resolved]
  - Chest pain [Unknown]
  - Pain [Unknown]
  - Non-small cell lung cancer [Unknown]
  - Alopecia [Recovered/Resolved]
  - Gait disturbance [Unknown]
  - Memory impairment [Unknown]
  - Hypoaesthesia [Unknown]
  - Decreased appetite [Unknown]
  - Paraesthesia [Unknown]
  - Somnolence [Unknown]
  - Depressed mood [Unknown]
  - Dry mouth [Unknown]
  - Blood cholesterol increased [Unknown]
  - Fatigue [Unknown]
  - Metastases to central nervous system [Recovered/Resolved]
  - Dysphagia [Unknown]
  - Dyspnoea [Unknown]
